FAERS Safety Report 5675028-4 (Version None)
Quarter: 2008Q1

REPORT INFORMATION
  Report Type: 
  Country: None (occurrence: None)
  Receive Date: 20080320
  Receipt Date: 20080317
  Transmission Date: 20080703
  Serious: Yes (Life-Threatening, Hospitalization, Disabling)
  Sender: FDA-Public Use
  Company Number: PHRM2008FR00893

PATIENT
  Age: 20 Year
  Sex: Male
  Weight: 72 kg

DRUGS (1)
  1. VOLTAREN [Suspect]
     Indication: PAIN
     Dosage: 100 MG, QD
     Route: 048
     Dates: start: 20050509, end: 20050520

REACTIONS (8)
  - AMYOTROPHY [None]
  - EMERGENCY CARE [None]
  - EXERCISE TOLERANCE DECREASED [None]
  - FOLLICULITIS [None]
  - INJECTION SITE ABSCESS [None]
  - NECROTISING FASCIITIS STAPHYLOCOCCAL [None]
  - STAPHYLOCOCCAL ABSCESS [None]
  - SURGERY [None]
